FAERS Safety Report 8838261 (Version 1)
Quarter: 2012Q4

REPORT INFORMATION
  Report Type: 
  Country: US (occurrence: US)
  Receive Date: 20121012
  Receipt Date: 20121012
  Transmission Date: 20130627
  Serious: No
  Sender: FDA-Public Use
  Company Number: US-FOUGERA-2012FO001090

PATIENT
  Age: 64 Year
  Sex: Female
  Weight: 102.06 kg

DRUGS (2)
  1. BETAMETHASONE VALERATE [Suspect]
     Indication: DERMATITIS ACNEIFORM
     Route: 061
     Dates: start: 20120430, end: 20120501
  2. ANTIGLAUCOMA PREPARATIONS AND MIOTICS [Concomitant]
     Indication: GLAUCOMA

REACTIONS (4)
  - Application site pruritus [Recovering/Resolving]
  - Application site pain [Recovering/Resolving]
  - Dermatitis acneiform [Recovering/Resolving]
  - Condition aggravated [Recovering/Resolving]
